FAERS Safety Report 20378762 (Version 5)
Quarter: 2022Q1

REPORT INFORMATION
  Report Type: Spontaneous
  Country: US (occurrence: US)
  Receive Date: 20220126
  Receipt Date: 20220223
  Transmission Date: 20220423
  Serious: No
  Sender: FDA-Public Use
  Company Number: US-ALXN-A202200887

PATIENT
  Age: 56 Year
  Sex: Female

DRUGS (1)
  1. STRENSIQ [Suspect]
     Active Substance: ASFOTASE ALFA
     Indication: Hypophosphatasia
     Dosage: 80 MG , Q3W
     Route: 058
     Dates: start: 20220122

REACTIONS (6)
  - Lower limb fracture [Recovering/Resolving]
  - Injection site pain [Unknown]
  - Injection site erythema [Recovering/Resolving]
  - Injection site pruritus [Recovering/Resolving]
  - Injection site induration [Recovering/Resolving]
  - Injection site reaction [Unknown]

NARRATIVE: CASE EVENT DATE: 20220122
